FAERS Safety Report 21838055 (Version 2)
Quarter: 2023Q1

REPORT INFORMATION
  Report Type: Spontaneous
  Country: ES (occurrence: ES)
  Receive Date: 20230109
  Receipt Date: 20230111
  Transmission Date: 20230418
  Serious: Yes (Hospitalization)
  Sender: FDA-Public Use
  Company Number: ES-PFIZER INC-2014332198

PATIENT
  Age: 38 Year
  Sex: Male

DRUGS (1)
  1. METHOTREXATE SODIUM [Suspect]
     Active Substance: METHOTREXATE SODIUM
     Indication: Psoriasis
     Dosage: 10 MG, DAILY
     Route: 048

REACTIONS (10)
  - Toxicity to various agents [Recovered/Resolved]
  - Accidental overdose [Recovered/Resolved]
  - Pyrexia [Recovered/Resolved]
  - Dysphagia [Recovered/Resolved]
  - Mouth ulceration [Recovered/Resolved]
  - Hepatic enzyme increased [Recovered/Resolved]
  - Platelet count decreased [Recovered/Resolved]
  - Psoriasis [Recovered/Resolved]
  - Condition aggravated [Recovered/Resolved]
  - Genital ulceration [Recovered/Resolved]
